FAERS Safety Report 12510270 (Version 2)
Quarter: 2016Q3

REPORT INFORMATION
  Report Type: Report from Study
  Country: DE (occurrence: DE)
  Receive Date: 20160629
  Receipt Date: 20160713
  Transmission Date: 20161109
  Serious: Yes (Hospitalization)
  Sender: FDA-Public Use
  Company Number: DE-JNJFOC-20160624447

PATIENT
  Age: 71 Year
  Sex: Male
  Weight: 81 kg

DRUGS (6)
  1. FELODIPIN [Concomitant]
     Active Substance: FELODIPINE
     Route: 048
  2. VALOCORDIN [Concomitant]
     Active Substance: BROMISOVAL\HOPS\PHENOBARBITAL
     Route: 048
  3. VALSARTAN AND HYDROCHLOROTHIAZIDE [Concomitant]
     Active Substance: HYDROCHLOROTHIAZIDE\VALSARTAN
     Route: 048
  4. XARELTO [Suspect]
     Active Substance: RIVAROXABAN
     Indication: ATRIAL FIBRILLATION
     Route: 048
     Dates: start: 201409, end: 20160610
  5. XARELTO [Suspect]
     Active Substance: RIVAROXABAN
     Indication: CEREBROVASCULAR ACCIDENT PROPHYLAXIS
     Route: 048
     Dates: start: 201409, end: 20160610
  6. LIPROLOG [Concomitant]
     Active Substance: INSULIN LISPRO
     Dosage: DOSE 20-18-18
     Route: 058

REACTIONS (1)
  - Brain stem ischaemia [Not Recovered/Not Resolved]

NARRATIVE: CASE EVENT DATE: 20160610
